FAERS Safety Report 8393451-4 (Version None)
Quarter: 2012Q2

REPORT INFORMATION
  Report Type: 
  Country: None (occurrence: None)
  Receive Date: 20120529
  Receipt Date: 20120514
  Transmission Date: 20120825
  Serious: Yes (Hospitalization)
  Sender: FDA-Public Use
  Company Number: CHPA2012US011017

PATIENT
  Sex: Female

DRUGS (3)
  1. AFRIN                              /00070002/ [Concomitant]
     Dosage: UNK
     Route: 045
  2. PHENYLEPHRINE HCL [Suspect]
     Indication: NASAL CONGESTION
     Dosage: UNK, QD
     Route: 045
  3. 4 WAY MENTHOLATED NASAL SPRAY [Suspect]
     Indication: NASAL CONGESTION
     Dosage: UNK, ONCE/SINGLE
     Route: 045

REACTIONS (1)
  - UPPER LIMB FRACTURE [None]
